FAERS Safety Report 5226655-X (Version None)
Quarter: 2007Q1

REPORT INFORMATION
  Report Type: 
  Country: None (occurrence: None)
  Receive Date: 20070201
  Receipt Date: 20070126
  Transmission Date: 20070707
  Serious: Yes (Other)
  Sender: FDA-Public Use
  Company Number: NL-PFIZER INC-2007007647

PATIENT

DRUGS (1)
  1. FRAGMIN [Suspect]
     Dosage: FREQ:DAILY
     Route: 058

REACTIONS (2)
  - MOBILITY DECREASED [None]
  - THROMBOSIS [None]
